FAERS Safety Report 17022708 (Version 1)
Quarter: 2019Q4

REPORT INFORMATION
  Report Type: Spontaneous
  Country: US (occurrence: US)
  Receive Date: 20191112
  Receipt Date: 20191112
  Transmission Date: 20200122
  Serious: No
  Sender: FDA-Public Use
  Company Number: US-009507513-1911USA004342

PATIENT
  Age: 51 Year
  Sex: Male

DRUGS (3)
  1. IMFINZI [Concomitant]
     Active Substance: DURVALUMAB
  2. AMOXICILLIN. [Concomitant]
     Active Substance: AMOXICILLIN
  3. KEYTRUDA [Suspect]
     Active Substance: PEMBROLIZUMAB
     Indication: RENAL CANCER
     Dosage: UNK
     Route: 042

REACTIONS (1)
  - Rash [Recovered/Resolved]
